FAERS Safety Report 20958470 (Version 5)
Quarter: 2022Q3

REPORT INFORMATION
  Report Type: Report from Study
  Country: US (occurrence: US)
  Receive Date: 20220614
  Receipt Date: 20220725
  Transmission Date: 20221026
  Serious: Yes (Hospitalization)
  Sender: FDA-Public Use
  Company Number: US-PFIZER INC-202200778622

PATIENT
  Age: 53 Year
  Sex: Male
  Weight: 86 kg

DRUGS (20)
  1. XALKORI [Suspect]
     Active Substance: CRIZOTINIB
     Indication: Uveal melanoma
     Dosage: 200 MG, BID (C1D8)
     Route: 048
     Dates: start: 20220321
  2. XALKORI [Suspect]
     Active Substance: CRIZOTINIB
     Dosage: 200 MG, BID (C2D1)
     Route: 048
     Dates: start: 20220411
  3. XALKORI [Suspect]
     Active Substance: CRIZOTINIB
     Dosage: 200 MG, BID (C3D1)
     Route: 048
     Dates: start: 20220509, end: 20220520
  4. DAROVASERTIB [Suspect]
     Active Substance: DAROVASERTIB
     Indication: Uveal melanoma
     Dosage: 300 MG, BID (C1D1)
     Route: 048
     Dates: start: 20220314
  5. DAROVASERTIB [Suspect]
     Active Substance: DAROVASERTIB
     Dosage: 300 MG, BID (C1D8)
     Route: 048
     Dates: start: 20220321
  6. DAROVASERTIB [Suspect]
     Active Substance: DAROVASERTIB
     Dosage: 300 MG, BID (C2D1)
     Route: 048
     Dates: start: 20220411
  7. DAROVASERTIB [Suspect]
     Active Substance: DAROVASERTIB
     Dosage: 300 MG, BID (C3D1)
     Route: 048
     Dates: start: 20220509, end: 20220520
  8. DAROVASERTIB [Suspect]
     Active Substance: DAROVASERTIB
     Dosage: 300 MG, BID (C34D1)
     Route: 048
     Dates: start: 20220604
  9. MINERALS\VITAMINS [Concomitant]
     Active Substance: MINERALS\VITAMINS
     Dosage: UNK
     Dates: start: 2017
  10. CALCIUM\VITAMIN D [Concomitant]
     Active Substance: CALCIUM\VITAMIN D
     Dosage: UNK
     Dates: start: 2017
  11. FERROUS SULFATE [Concomitant]
     Active Substance: FERROUS SULFATE
     Dosage: UNK
     Dates: start: 202103, end: 20220211
  12. GLUCOSAMINE + JOINT SHIELD [Concomitant]
     Dosage: UNK
     Dates: start: 2017
  13. KETOROLAC [Concomitant]
     Active Substance: KETOROLAC TROMETHAMINE
     Dosage: UNK
     Dates: start: 201808
  14. VITAMINS NOS [Concomitant]
     Active Substance: VITAMINS
     Dosage: UNK
     Dates: start: 2007
  15. ATORVASTATIN CALCIUM [Concomitant]
     Active Substance: ATORVASTATIN CALCIUM
     Dosage: UNK
     Dates: start: 2021
  16. MINOCYCLINE [Concomitant]
     Active Substance: MINOCYCLINE HYDROCHLORIDE
     Dosage: UNK
     Dates: start: 20211018, end: 20220221
  17. CLINDAMYCIN [Concomitant]
     Active Substance: CLINDAMYCIN
     Dosage: UNK
     Dates: start: 20220130, end: 202203
  18. LASIX [Concomitant]
     Active Substance: FUROSEMIDE
     Dosage: UNK
     Dates: start: 20220328
  19. IMODIUM [Concomitant]
     Active Substance: LOPERAMIDE HYDROCHLORIDE
     Dosage: UNK
     Dates: start: 20220322
  20. MUCINEX [Concomitant]
     Active Substance: GUAIFENESIN
     Dosage: UNK
     Dates: start: 20220417, end: 20220418

REACTIONS (1)
  - Sepsis [Recovered/Resolved]

NARRATIVE: CASE EVENT DATE: 20220520
